FAERS Safety Report 5655076-0 (Version None)
Quarter: 2008Q1

REPORT INFORMATION
  Report Type: 
  Country: None (occurrence: None)
  Receive Date: 20080307
  Receipt Date: 20071121
  Transmission Date: 20080703
  Serious: No
  Sender: FDA-Public Use
  Company Number: A0695637A

PATIENT
  Age: 67 Year
  Sex: Female

DRUGS (5)
  1. REQUIP [Suspect]
     Indication: RESTLESS LEGS SYNDROME
     Route: 048
     Dates: start: 20071029
  2. LEVOXYL [Concomitant]
  3. PROTONIX [Concomitant]
  4. ZYRTEC [Concomitant]
  5. DICYCLOMINE [Concomitant]

REACTIONS (1)
  - HEADACHE [None]
